FAERS Safety Report 7679140-X (Version None)
Quarter: 2011Q3

REPORT INFORMATION
  Report Type: 
  Country: None (occurrence: None)
  Receive Date: 20110812
  Receipt Date: 20110729
  Transmission Date: 20111222
  Serious: No
  Sender: FDA-Public Use
  Company Number: US-ELI_LILLY_AND_COMPANY-US201012004788

PATIENT
  Sex: Female

DRUGS (3)
  1. VITAMIN D [Suspect]
  2. CALCIUM CARBONATE [Concomitant]
  3. FORTEO [Suspect]
     Indication: OSTEOPOROSIS
     Dosage: 20 UG, QD
     Route: 058
     Dates: start: 20100809

REACTIONS (1)
  - FAECAL INCONTINENCE [None]
